FAERS Safety Report 7117965-X (Version None)
Quarter: 2010Q4

REPORT INFORMATION
  Report Type: 
  Country: None (occurrence: None)
  Receive Date: 20101118
  Receipt Date: 20101118
  Transmission Date: 20110411
  Serious: Yes (Disabling, Other)
  Sender: FDA-Public Use
  Company Number: None

PATIENT
  Age: 22 Year
  Sex: Male
  Weight: 72.5755 kg

DRUGS (2)
  1. CLARAVIS [Suspect]
     Indication: ACNE
     Dosage: 80MG DAILY PO
     Route: 048
     Dates: start: 20100608, end: 20100812
  2. CLARAVIS [Suspect]
     Indication: ACNE
     Dosage: 120 MG DAILY PO
     Route: 048
     Dates: start: 20100813, end: 20100927

REACTIONS (6)
  - ANXIETY [None]
  - CRYING [None]
  - DEPRESSION [None]
  - DIARRHOEA [None]
  - NAUSEA [None]
  - VOMITING [None]
